FAERS Safety Report 16191730 (Version 1)
Quarter: 2019Q2

REPORT INFORMATION
  Report Type: Spontaneous
  Country: ZA (occurrence: ZA)
  Receive Date: 20190412
  Receipt Date: 20190412
  Transmission Date: 20190711
  Serious: Yes (Death)
  Sender: FDA-Public Use
  Company Number: ZA-NAPPMUNDI-GBR-2019-0065756

PATIENT
  Age: 35 Year
  Sex: Female

DRUGS (1)
  1. OXYNORM [Suspect]
     Active Substance: OXYCODONE HYDROCHLORIDE
     Indication: PAIN
     Dosage: 25 MG, UNK (IN THE 4 AND HALF HOUR PERIOD); (STRENGTH: 10 MG / 1 ML)
     Route: 042

REACTIONS (1)
  - Fat embolism [Fatal]
